FAERS Safety Report 12915935 (Version 1)
Quarter: 2016Q4

REPORT INFORMATION
  Report Type: Spontaneous
  Country: US (occurrence: US)
  Receive Date: 20161107
  Receipt Date: 20161107
  Transmission Date: 20170207
  Serious: No
  Sender: FDA-Public Use
  Company Number: US-009507513-1610USA012411

PATIENT
  Age: 67 Year
  Sex: Male

DRUGS (2)
  1. DULERA [Suspect]
     Active Substance: FORMOTEROL FUMARATE DIHYDRATE\MOMETASONE FUROATE
     Dosage: 200 MCG. MOMETASONE FUROATE/5 MCG. FORMOTEROL FUMARATE DIHYDRATE/2 PUFFS/TWICE DAILY
     Route: 055
  2. ASMANEX HFA [Concomitant]
     Active Substance: MOMETASONE FUROATE

REACTIONS (3)
  - Secretion discharge [Not Recovered/Not Resolved]
  - Drug effect decreased [Not Recovered/Not Resolved]
  - Cough [Not Recovered/Not Resolved]
